FAERS Safety Report 8969304 (Version 1)
Quarter: 2012Q4

REPORT INFORMATION
  Report Type: 
  Country: PL (occurrence: PL)
  Receive Date: 20121217
  Receipt Date: 20121217
  Transmission Date: 20130627
  Serious: Yes (Death, Hospitalization, Other)
  Sender: FDA-Public Use
  Company Number: PHHY2012PL114739

PATIENT
  Age: 45 Year
  Sex: Male

DRUGS (2)
  1. CARBAMAZEPINE [Suspect]
     Indication: EPILEPSY
     Dosage: UNK UKN, UNK
  2. LEVETIRACETAM [Suspect]
     Dosage: UNK UKN, UNK

REACTIONS (18)
  - Cachexia [Fatal]
  - Abdominal neoplasm [Fatal]
  - Metastases to lymph nodes [Unknown]
  - Encephalitis [Unknown]
  - Hippocampal sclerosis [Unknown]
  - Disorientation [Unknown]
  - Aggression [Unknown]
  - Anger [Unknown]
  - Grand mal convulsion [Unknown]
  - Central nervous system lesion [Unknown]
  - Memory impairment [Unknown]
  - Depressed mood [Unknown]
  - Apathy [Unknown]
  - Protein total increased [Unknown]
  - Blood prolactin increased [Recovered/Resolved]
  - Blood cortisol increased [Recovered/Resolved]
  - Convulsion [Unknown]
  - Drug intolerance [Unknown]
